FAERS Safety Report 10183858 (Version 3)
Quarter: 2017Q4

REPORT INFORMATION
  Report Type: Spontaneous
  Country: US (occurrence: US)
  Receive Date: 20140520
  Receipt Date: 20171004
  Transmission Date: 20180320
  Serious: Yes (Hospitalization)
  Sender: FDA-Public Use
  Company Number: US-BAYER-2014-073386

PATIENT
  Age: 36 Year
  Sex: Female
  Weight: 40.82 kg

DRUGS (7)
  1. DEPO-PROVERA [Concomitant]
     Active Substance: MEDROXYPROGESTERONE ACETATE
  2. PRENATAL VITAMINS [Concomitant]
     Active Substance: VITAMINS
     Dosage: UNK
     Dates: start: 200403
  3. TOPAMAX [Concomitant]
     Active Substance: TOPIRAMATE
  4. MIRENA [Suspect]
     Active Substance: LEVONORGESTREL
     Indication: CONTRACEPTION
     Dosage: 20 MCG/24HR, CONT
     Route: 015
     Dates: start: 20090528, end: 20170421
  5. MAXALT [Concomitant]
     Active Substance: RIZATRIPTAN BENZOATE
  6. PRENATAL VITAMINS [Concomitant]
     Active Substance: VITAMINS
     Dosage: UNK
     Dates: start: 200401, end: 200805
  7. METOPROLOL. [Concomitant]
     Active Substance: METOPROLOL

REACTIONS (5)
  - Device dislocation [None]
  - Embedded device [None]
  - Complication of device removal [None]
  - Device issue [None]
  - Pain [None]

NARRATIVE: CASE EVENT DATE: 20110531
